FAERS Safety Report 9220198 (Version 2)
Quarter: 2013Q2

REPORT INFORMATION
  Report Type: Spontaneous
  Country: FR (occurrence: FR)
  Receive Date: 20130409
  Receipt Date: 20130415
  Transmission Date: 20140414
  Serious: Yes (Hospitalization, Other)
  Sender: FDA-Public Use
  Company Number: FR-JNJFOC-20130402203

PATIENT
  Age: 92 Year
  Sex: Female

DRUGS (10)
  1. XARELTO [Suspect]
     Indication: CEREBROVASCULAR ACCIDENT PROPHYLAXIS
     Route: 048
     Dates: end: 20130328
  2. XARELTO [Suspect]
     Indication: ATRIAL FIBRILLATION
     Route: 048
     Dates: end: 20130328
  3. XARELTO [Suspect]
     Indication: AORTIC VALVE REPLACEMENT
     Route: 048
     Dates: end: 20130328
  4. CORTANCYL [Concomitant]
     Indication: ARTHRITIS
     Route: 065
  5. LEVOTHYROX [Concomitant]
     Route: 065
  6. CORDARONE [Concomitant]
     Route: 065
  7. LASILIX [Concomitant]
     Route: 065
  8. BISOPROLOL [Concomitant]
     Route: 065
  9. INEXIUM [Concomitant]
     Route: 065
  10. DOLIPRANE [Concomitant]
     Route: 065

REACTIONS (2)
  - Renal impairment [Unknown]
  - Off label use [Unknown]
